FAERS Safety Report 13770205 (Version 1)
Quarter: 2017Q3

REPORT INFORMATION
  Report Type: Spontaneous
  Country: US (occurrence: US)
  Receive Date: 20170719
  Receipt Date: 20170719
  Transmission Date: 20171127
  Serious: Yes (Hospitalization)
  Sender: FDA-Public Use
  Company Number: None

PATIENT
  Age: 64 Year
  Sex: Male
  Weight: 88.45 kg

DRUGS (9)
  1. NIACIN. [Concomitant]
     Active Substance: NIACIN
  2. GLIPIZIDE. [Concomitant]
     Active Substance: GLIPIZIDE
  3. LOSARTAN. [Concomitant]
     Active Substance: LOSARTAN
  4. APIXABAN 5 MG [Suspect]
     Active Substance: APIXABAN
     Indication: THROMBOSIS
     Route: 048
     Dates: start: 20170623, end: 20170711
  5. OMEPRAZOLE. [Concomitant]
     Active Substance: OMEPRAZOLE
  6. CARVEDILOL. [Concomitant]
     Active Substance: CARVEDILOL
  7. FLUTICASONE PROP [Concomitant]
     Active Substance: FLUTICASONE PROPIONATE
  8. ALLOPURINOL. [Concomitant]
     Active Substance: ALLOPURINOL
  9. METFORMIN HCL [Concomitant]
     Active Substance: METFORMIN HYDROCHLORIDE

REACTIONS (4)
  - Dysphagia [None]
  - Cough [None]
  - Choking sensation [None]
  - Tongue haemorrhage [None]

NARRATIVE: CASE EVENT DATE: 20170705
